FAERS Safety Report 8098349-7 (Version None)
Quarter: 2012Q1

REPORT INFORMATION
  Report Type: 
  Country: None (occurrence: None)
  Receive Date: 20120131
  Receipt Date: 20120123
  Transmission Date: 20120608
  Serious: Yes (Other)
  Sender: FDA-Public Use
  Company Number: US-ASTRAZENECA-2009UW12857

PATIENT
  Age: 67 Year
  Sex: Female
  Weight: 75.7 kg

DRUGS (6)
  1. INDERAL [Concomitant]
  2. BENICAR [Concomitant]
     Indication: HYPERTENSION
  3. ASPIRIN [Concomitant]
  4. IMDUR [Concomitant]
  5. NEXIUM [Suspect]
     Indication: HAEMATEMESIS
     Route: 048
  6. ARIMIDEX [Suspect]
     Indication: BREAST CANCER
     Route: 048
     Dates: start: 20081101

REACTIONS (13)
  - GASTRIC HAEMORRHAGE [None]
  - HOT FLUSH [None]
  - ALOPECIA [None]
  - BREAST CANCER [None]
  - GAIT DISTURBANCE [None]
  - NAUSEA [None]
  - MUSCLE SPASMS [None]
  - ADVERSE EVENT [None]
  - OEDEMA PERIPHERAL [None]
  - ASTHENIA [None]
  - MALAISE [None]
  - HAEMATEMESIS [None]
  - WEIGHT INCREASED [None]
